FAERS Safety Report 8473206-2 (Version None)
Quarter: 2012Q2

REPORT INFORMATION
  Report Type: 
  Country: None (occurrence: None)
  Receive Date: 20120627
  Receipt Date: 20120622
  Transmission Date: 20120825
  Serious: Yes (Other)
  Sender: FDA-Public Use
  Company Number: US-PFIZER INC-2012151037

PATIENT
  Sex: Male

DRUGS (3)
  1. LATANOPROST [Suspect]
     Dosage: UNK
  2. XALATAN [Suspect]
     Dosage: UNK
  3. LATANOPROST [Suspect]
     Dosage: UNK

REACTIONS (2)
  - DRUG INEFFECTIVE [None]
  - INTRAOCULAR PRESSURE TEST ABNORMAL [None]
